FAERS Safety Report 7922714-9 (Version None)
Quarter: 2011Q4

REPORT INFORMATION
  Report Type: 
  Country: None (occurrence: None)
  Receive Date: 20111117
  Receipt Date: 20110620
  Transmission Date: 20120403
  Serious: No
  Sender: FDA-Public Use
  Company Number: US-ALLERGAN-1108349US

PATIENT
  Age: 88 Year
  Sex: Male

DRUGS (4)
  1. ATENOLOL [Concomitant]
     Dosage: UNK
  2. LIPITOR [Concomitant]
     Dosage: UNK
  3. COMBIGAN [Suspect]
     Indication: GLAUCOMA
     Dosage: 1 GTT, BID
     Route: 047
     Dates: start: 20110619
  4. UNSPECIFIED VITAMINS [Concomitant]
     Dosage: UNK

REACTIONS (1)
  - SOMNOLENCE [None]
